FAERS Safety Report 23861398 (Version 2)
Quarter: 2024Q2

REPORT INFORMATION
  Report Type: Report from Study
  Country: JP (occurrence: JP)
  Receive Date: 20240516
  Receipt Date: 20240521
  Transmission Date: 20240716
  Serious: Yes (Hospitalization, Other)
  Sender: FDA-Public Use
  Company Number: JP-SA-2024SA140067

PATIENT
  Age: 59 Year
  Sex: Male

DRUGS (15)
  1. AVALGLUCOSIDASE ALFA [Suspect]
     Active Substance: AVALGLUCOSIDASE ALFA
     Indication: Glycogen storage disease type II
     Dosage: 1200 MG, QOW
     Route: 041
     Dates: start: 20230613, end: 20240416
  2. AVALGLUCOSIDASE ALFA [Suspect]
     Active Substance: AVALGLUCOSIDASE ALFA
     Dosage: 1200 MG, QOW
     Route: 041
     Dates: start: 20220426, end: 20220524
  3. AVALGLUCOSIDASE ALFA [Suspect]
     Active Substance: AVALGLUCOSIDASE ALFA
     Dosage: 1200 MG, QOW
     Route: 041
     Dates: start: 20220614, end: 20220823
  4. AVALGLUCOSIDASE ALFA [Suspect]
     Active Substance: AVALGLUCOSIDASE ALFA
     Dosage: 1200 MG, QOW
     Route: 041
     Dates: start: 20220913, end: 20221122
  5. AVALGLUCOSIDASE ALFA [Suspect]
     Active Substance: AVALGLUCOSIDASE ALFA
     Dosage: 1200 MG, QOW
     Route: 041
     Dates: start: 20221213, end: 20230124
  6. AVALGLUCOSIDASE ALFA [Suspect]
     Active Substance: AVALGLUCOSIDASE ALFA
     Dosage: 1200 MG, QOW
     Route: 041
     Dates: start: 20230214, end: 20230523
  7. AVALGLUCOSIDASE ALFA [Suspect]
     Active Substance: AVALGLUCOSIDASE ALFA
     Dosage: 1200 MG, 1X
     Route: 041
     Dates: start: 20240501, end: 20240501
  8. AMLODIPINE BESYLATE\IRBESARTAN [Concomitant]
     Active Substance: AMLODIPINE BESYLATE\IRBESARTAN
     Indication: Product used for unknown indication
     Dosage: UNK
     Route: 048
  9. ESAXERENONE [Concomitant]
     Active Substance: ESAXERENONE
     Indication: Product used for unknown indication
     Dosage: UNK
     Route: 048
  10. NAFTOPIDIL [Concomitant]
     Active Substance: NAFTOPIDIL
     Indication: Product used for unknown indication
     Dosage: UNK
     Route: 048
  11. OMEPRAZOLE [Concomitant]
     Active Substance: DONEPEZIL HYDROCHLORIDE\OMEPRAZOLE\OMEPRAZOLE MAGNESIUM
     Indication: Product used for unknown indication
     Dosage: UNK
     Route: 048
  12. ASPIRIN [Concomitant]
     Active Substance: ASPIRIN
     Indication: Product used for unknown indication
     Dosage: UNK
     Route: 048
  13. ATORVASTATIN CALCIUM\EZETIMIBE [Concomitant]
     Active Substance: ATORVASTATIN CALCIUM\EZETIMIBE
     Indication: Product used for unknown indication
     Dosage: UNK
     Route: 048
  14. ICOSAPENT ETHYL [Concomitant]
     Active Substance: ICOSAPENT ETHYL
     Indication: Product used for unknown indication
     Dosage: UNK
     Route: 065
  15. VIBEGRON [Concomitant]
     Active Substance: VIBEGRON
     Indication: Product used for unknown indication
     Dosage: UNK
     Route: 048

REACTIONS (2)
  - Pelvic fracture [Recovered/Resolved]
  - Fractured sacrum [Recovered/Resolved]

NARRATIVE: CASE EVENT DATE: 20240207
